FAERS Safety Report 7241913-5 (Version None)
Quarter: 2011Q1

REPORT INFORMATION
  Report Type: 
  Country: None (occurrence: None)
  Receive Date: 20110124
  Receipt Date: 20110111
  Transmission Date: 20110831
  Serious: Yes (Death, Hospitalization)
  Sender: FDA-Public Use
  Company Number: US-CELGENEUS-163-21880-10100755

PATIENT
  Sex: Female

DRUGS (6)
  1. COUMADIN [Concomitant]
     Route: 065
     Dates: end: 20101001
  2. STEROIDS [Concomitant]
     Indication: PAIN
     Route: 008
  3. REVLIMID [Suspect]
     Route: 048
     Dates: start: 20081001
  4. REVLIMID [Suspect]
     Route: 048
     Dates: start: 20100901, end: 20100101
  5. INSULIN [Concomitant]
     Route: 065
  6. REVLIMID [Suspect]
     Route: 048
     Dates: start: 20071128, end: 20080101

REACTIONS (1)
  - CEREBROVASCULAR ACCIDENT [None]
